FAERS Safety Report 14861761 (Version 1)
Quarter: 2018Q2

REPORT INFORMATION
  Report Type: Spontaneous
  Country: US (occurrence: US)
  Receive Date: 20180508
  Receipt Date: 20180508
  Transmission Date: 20180711
  Serious: No
  Sender: FDA-Public Use
  Company Number: US-VIFOR (INTERNATIONAL) INC.-VIT-2018-00047

PATIENT
  Age: 67 Year
  Sex: Female
  Weight: 63.56 kg

DRUGS (2)
  1. ERGOCALCIFEROL. [Concomitant]
     Active Substance: ERGOCALCIFEROL
  2. VELTASSA [Suspect]
     Active Substance: PATIROMER
     Indication: BLOOD POTASSIUM INCREASED
     Route: 048
     Dates: start: 201706, end: 201711

REACTIONS (1)
  - Dysphonia [Recovering/Resolving]

NARRATIVE: CASE EVENT DATE: 201707
